FAERS Safety Report 16168005 (Version 1)
Quarter: 2019Q2

REPORT INFORMATION
  Report Type: Spontaneous
  Country: US (occurrence: US)
  Receive Date: 20190408
  Receipt Date: 20190408
  Transmission Date: 20190711
  Serious: No
  Sender: FDA-Public Use
  Company Number: US-GLENMARK PHARMACEUTICALS-2019GMK039745

PATIENT

DRUGS (1)
  1. CLOTRIMAZOLE. [Suspect]
     Active Substance: CLOTRIMAZOLE
     Indication: SKIN DISORDER
     Dosage: UNK, SINGLE (ONCE USED AS A TOOTHPASTE)
     Route: 050
     Dates: start: 20190209, end: 20190209

REACTIONS (3)
  - Accidental exposure to product [Unknown]
  - No adverse event [Unknown]
  - Product selection error [Unknown]

NARRATIVE: CASE EVENT DATE: 20190209
